FAERS Safety Report 5483792-2 (Version None)
Quarter: 2007Q4

REPORT INFORMATION
  Report Type: 
  Country: None (occurrence: None)
  Receive Date: 20071012
  Receipt Date: 20071002
  Transmission Date: 20080405
  Serious: Yes (Disabling)
  Sender: FDA-Public Use
  Company Number: B0488313A

PATIENT
  Age: 53 Year
  Sex: Female
  Weight: 110 kg

DRUGS (1)
  1. AVANDIA [Suspect]
     Dosage: 2TAB PER DAY
     Route: 048
     Dates: start: 20040801, end: 20070501

REACTIONS (4)
  - FOOT FRACTURE [None]
  - GAIT DISTURBANCE [None]
  - PAIN IN EXTREMITY [None]
  - STRESS FRACTURE [None]
